FAERS Safety Report 8801932 (Version 1)
Quarter: 2012Q4

REPORT INFORMATION
  Report Type: 
  Country: US (occurrence: US)
  Receive Date: 20120921
  Receipt Date: 20120921
  Transmission Date: 20130627
  Serious: No
  Sender: FDA-Public Use
  Company Number: US-MYLANLABS-2012S1014871

PATIENT
  Age: 63 Year
  Sex: Male
  Weight: 104.33 kg

DRUGS (2)
  1. LATANOPROST [Suspect]
     Indication: GLAUCOMA
     Route: 047
     Dates: start: 20110928
  2. DORZOLAMIDE [Concomitant]
     Indication: INTRAOCULAR PRESSURE INCREASED
     Route: 047

REACTIONS (2)
  - Drug effect decreased [Not Recovered/Not Resolved]
  - Intraocular pressure increased [Not Recovered/Not Resolved]
